FAERS Safety Report 18034914 (Version 1)
Quarter: 2020Q3

REPORT INFORMATION
  Report Type: Spontaneous
  Country: US (occurrence: US)
  Receive Date: 20200716
  Receipt Date: 20200716
  Transmission Date: 20201103
  Serious: Yes (Hospitalization)
  Sender: FDA-Public Use
  Company Number: None

PATIENT
  Age: 63 Year
  Sex: Male

DRUGS (23)
  1. TOBRAMYCIN 300MG/5ML 20ML=4NEB [Suspect]
     Active Substance: TOBRAMYCIN
     Indication: BRONCHIECTASIS
     Dosage: 1 AMPLUE BID INH ? 28 D ON ? 28 D OFF
     Route: 055
     Dates: start: 20200131
  2. CICLOPIROX OLAMINE. [Concomitant]
     Active Substance: CICLOPIROX OLAMINE
  3. ERGOCALICIFER [Concomitant]
  4. HYDROCO/APAP [Concomitant]
     Active Substance: ACETAMINOPHEN\HYDROCODONE
  5. MAGNESIUM?OX [Concomitant]
  6. NIACINAMIDE [Concomitant]
     Active Substance: NIACINAMIDE
  7. TRAMADOL HCL [Concomitant]
     Active Substance: TRAMADOL HYDROCHLORIDE
  8. ZARXIO [Concomitant]
     Active Substance: FILGRASTIM-SNDZ
  9. DEFERASIROX. [Concomitant]
     Active Substance: DEFERASIROX
  10. DOK [Concomitant]
     Active Substance: DOCUSATE SODIUM
  11. ELIQUIS [Concomitant]
     Active Substance: APIXABAN
  12. PREDNISONE. [Concomitant]
     Active Substance: PREDNISONE
  13. ACYCLOIR [Concomitant]
  14. CALCITRIOL. [Concomitant]
     Active Substance: CALCITRIOL
  15. METOPROL TAR [Concomitant]
  16. BACTRIM [Concomitant]
     Active Substance: SULFAMETHOXAZOLE\TRIMETHOPRIM
  17. MONTELUKAST [Concomitant]
     Active Substance: MONTELUKAST SODIUM
  18. SIMVASTATIN. [Concomitant]
     Active Substance: SIMVASTATIN
  19. AMIODARONE [Concomitant]
     Active Substance: AMIODARONE
  20. ARANESP [Concomitant]
     Active Substance: DARBEPOETIN ALFA
  21. ACITRETIN. [Concomitant]
     Active Substance: ACITRETIN
  22. ALLOPURINOL. [Concomitant]
     Active Substance: ALLOPURINOL
  23. AMOXICILLIN. [Concomitant]
     Active Substance: AMOXICILLIN

REACTIONS (1)
  - Haemoglobin decreased [None]

NARRATIVE: CASE EVENT DATE: 20200619
